FAERS Safety Report 17133713 (Version 1)
Quarter: 2019Q4

REPORT INFORMATION
  Report Type: Spontaneous
  Country: US (occurrence: US)
  Receive Date: 20191210
  Receipt Date: 20191210
  Transmission Date: 20200122
  Serious: No
  Sender: FDA-Public Use
  Company Number: US-MICRO LABS LIMITED-ML2019-01977

PATIENT
  Age: 1 Year

DRUGS (1)
  1. CROMOLYN SODIUM ORAL SOLUTION 100 MG/5 ML [Suspect]
     Active Substance: CROMOLYN SODIUM
     Dosage: CROMOLYN SODIUM ORAL SOLUTION 100 MG/5 ML
     Route: 048

REACTIONS (1)
  - Product prescribing error [Unknown]
